FAERS Safety Report 8421883 (Version 2)
Quarter: 2012Q4

REPORT INFORMATION
  Report Type: 
  Country: BR (occurrence: BR)
  Receive Date: 20120223
  Receipt Date: 20121003
  Transmission Date: 20130627
  Serious: Yes (Other)
  Sender: FDA-Public Use
  Company Number: BR-ELI_LILLY_AND_COMPANY-BR201202003993

PATIENT
  Age: 84 Year
  Sex: Female

DRUGS (6)
  1. FORTEO [Suspect]
     Indication: OSTEOPOROSIS
     Dosage: UNK, unknown
     Route: 065
     Dates: start: 20091202, end: 201111
  2. CLONAZEPAM [Concomitant]
     Indication: DEMENTIA ALZHEIMER^S TYPE
     Dosage: UNK, unknown
     Route: 065
  3. MACRODANTINA [Concomitant]
     Dosage: UNK, unknown
     Route: 065
  4. FERROUS SULFATE [Concomitant]
     Dosage: UNK, unknown
     Route: 065
  5. RISPERIDONA [Concomitant]
     Dosage: UNK, unknown
     Route: 065
  6. SEROQUEL [Concomitant]
     Dosage: UNK, unknown
     Route: 065

REACTIONS (1)
  - Colorectal cancer recurrent [Recovered/Resolved]
